FAERS Safety Report 19541175 (Version 2)
Quarter: 2021Q3

REPORT INFORMATION
  Report Type: Spontaneous
  Country: IN (occurrence: IN)
  Receive Date: 20210713
  Receipt Date: 20210728
  Transmission Date: 20211014
  Serious: Yes (Hospitalization)
  Sender: FDA-Public Use
  Company Number: IN-LUPIN LIMITED-2021-11226

PATIENT
  Age: 34 Year
  Sex: Male
  Weight: 91 kg

DRUGS (2)
  1. SALBAIR [SALBUTAMOL SULFATE] [Suspect]
     Active Substance: ALBUTEROL SULFATE
     Indication: DYSPNOEA
     Dosage: UNK (SUBLINGUAL SPRAY), 2 PUFFS
     Route: 048
     Dates: start: 20210628, end: 2021
  2. BUDAMATE [Concomitant]
     Indication: DYSPNOEA
     Dosage: UNK UNK, BID (400), DAILY 2 PUFFS, TWICE A DAY
     Route: 065

REACTIONS (2)
  - Chest pain [Recovered/Resolved]
  - Heart rate increased [Recovered/Resolved]

NARRATIVE: CASE EVENT DATE: 20210628
